FAERS Safety Report 4332518-4 (Version None)
Quarter: 2004Q2

REPORT INFORMATION
  Report Type: 
  Country: None (occurrence: None)
  Receive Date: 20040401
  Receipt Date: 20040317
  Transmission Date: 20050107
  Serious: Yes (Death)
  Sender: FDA-Public Use
  Company Number: 204755

PATIENT
  Age: 58 Year
  Sex: Female
  Weight: 50 kg

DRUGS (10)
  1. HERCEPTIN [Suspect]
     Indication: BREAST CANCER METASTATIC
     Dosage: 4 MG/KG, SINGLE, INTRAVENOUS
     Route: 042
     Dates: start: 20010808, end: 20010808
  2. HERCEPTIN [Suspect]
     Dosage: 2 MG/KG, 1/WEEK, INTRAVENOUS
     Route: 042
     Dates: start: 20010815, end: 20020529
  3. TAXOTERE [Suspect]
     Indication: BREAST CANCER METASTATIC
     Dosage: 40 MG, 2/WEEK, INTRAVENOUS
     Route: 042
     Dates: start: 20020130, end: 20020529
  4. TAXOL [Suspect]
     Indication: BREAST CANCER METASTATIC
     Dosage: 100 MG, 1/WEEK, INTRAVENOUS
     Route: 042
     Dates: start: 20010704, end: 20011107
  5. TAXOL [Suspect]
     Dosage: 80 MG, 1/WEEK, INTRAVENOUS
     Route: 042
     Dates: start: 20011114, end: 20011226
  6. DOXIFLURIDINE (DOXIFLURIDINE) [Concomitant]
  7. DIPHENHYDRAMINE (DIPHENHYDRAMINE NOS) [Concomitant]
  8. DECADRON [Concomitant]
  9. ZANTAC [Concomitant]
  10. BISPHONAL (DISODIUM INCADRONATE) [Concomitant]

REACTIONS (8)
  - ANAEMIA [None]
  - ANOREXIA [None]
  - BACK PAIN [None]
  - DYSPHAGIA [None]
  - EJECTION FRACTION DECREASED [None]
  - GASTRIC ULCER HAEMORRHAGE [None]
  - OESOPHAGEAL STENOSIS [None]
  - STRESS SYMPTOMS [None]
